FAERS Safety Report 5730593-3 (Version None)
Quarter: 2008Q2

REPORT INFORMATION
  Report Type: 
  Country: None (occurrence: None)
  Receive Date: 20080507
  Receipt Date: 20080501
  Transmission Date: 20081010
  Serious: Yes (Life-Threatening)
  Sender: FDA-Public Use
  Company Number: B0508382A

PATIENT
  Age: 67 Year
  Sex: Female

DRUGS (45)
  1. ARIXTRA [Suspect]
     Indication: THROMBOSIS PROPHYLAXIS
     Dosage: 2.5MG PER DAY
     Route: 058
     Dates: start: 20071006, end: 20071006
  2. BACTROBAN [Suspect]
     Indication: DRUG USE FOR UNKNOWN INDICATION
     Route: 065
     Dates: start: 20071001, end: 20071005
  3. VANCOMYCIN [Suspect]
     Indication: DRUG USE FOR UNKNOWN INDICATION
     Route: 065
     Dates: start: 20071012, end: 20071018
  4. OMEPRAZOLE [Suspect]
     Indication: DRUG USE FOR UNKNOWN INDICATION
     Route: 065
     Dates: start: 20071014, end: 20071015
  5. CODEINE SUL TAB [Suspect]
     Indication: DRUG USE FOR UNKNOWN INDICATION
     Route: 065
     Dates: start: 20071016, end: 20071021
  6. NORMISON [Suspect]
     Indication: DRUG USE FOR UNKNOWN INDICATION
     Route: 065
     Dates: start: 20071005, end: 20071005
  7. CARDICOR [Suspect]
     Indication: DRUG USE FOR UNKNOWN INDICATION
     Route: 065
     Dates: start: 20071012, end: 20071019
  8. AMILORIDE HYDROCHLORIDE [Suspect]
     Indication: DRUG USE FOR UNKNOWN INDICATION
     Route: 065
     Dates: start: 20071011, end: 20071019
  9. CHLORPHENIRAMINE MALEATE [Suspect]
     Indication: DRUG USE FOR UNKNOWN INDICATION
     Route: 065
     Dates: start: 20071018, end: 20071019
  10. RANITIDINE [Suspect]
     Indication: DRUG USE FOR UNKNOWN INDICATION
     Dosage: 150MG PER DAY
     Route: 048
     Dates: start: 20071019, end: 20071021
  11. IMMUNE GLOBULIN INTRAVENOUS (HUMAN) [Suspect]
     Indication: DRUG USE FOR UNKNOWN INDICATION
     Route: 065
     Dates: start: 20071022, end: 20071023
  12. DICLOFENAC [Suspect]
     Indication: DRUG USE FOR UNKNOWN INDICATION
     Route: 065
     Dates: start: 20070928
  13. ZINACEF [Suspect]
     Indication: DRUG USE FOR UNKNOWN INDICATION
     Route: 065
     Dates: start: 20071006, end: 20071007
  14. PARACETAMOL [Suspect]
     Indication: DRUG USE FOR UNKNOWN INDICATION
     Route: 065
     Dates: start: 20071016, end: 20071021
  15. MORPHINE [Suspect]
     Indication: DRUG USE FOR UNKNOWN INDICATION
     Route: 065
     Dates: start: 20071005, end: 20071006
  16. TRAMADOL HCL [Suspect]
     Indication: DRUG USE FOR UNKNOWN INDICATION
     Route: 065
     Dates: start: 20071006, end: 20071006
  17. FUROSEMIDE [Suspect]
     Indication: DRUG USE FOR UNKNOWN INDICATION
     Route: 065
     Dates: start: 20071006, end: 20071006
  18. ASPIRIN [Concomitant]
     Dosage: 7.5MG PER DAY
     Route: 048
  19. ENOXAPARIN SODIUM [Concomitant]
     Dosage: 40MG PER DAY
     Route: 058
  20. MOXIFLOXACIN HCL [Concomitant]
     Dosage: 400MG PER DAY
     Route: 048
  21. ENOXAPARIN SODIUM [Concomitant]
     Dates: start: 20071019, end: 20071022
  22. LIPITOR [Concomitant]
     Dates: start: 20070926
  23. SERETIDE [Concomitant]
     Dates: start: 20070926
  24. COAMILOFRUSE [Concomitant]
     Dates: start: 20071013, end: 20071019
  25. BISOPROLOL FUMARATE [Concomitant]
     Dates: start: 20071012, end: 20071019
  26. DOXAZOSIN MESYLATE [Concomitant]
     Dates: start: 20070927, end: 20071020
  27. LACTULOSE [Concomitant]
     Dates: start: 20071010, end: 20071021
  28. COMBIVENT [Concomitant]
     Dates: start: 20070926, end: 20071023
  29. ASPIRIN [Concomitant]
     Dates: start: 20071008, end: 20071021
  30. AZTREONAM [Concomitant]
     Dates: start: 20071011, end: 20071018
  31. MOXIFLOXACIN HCL [Concomitant]
     Dates: start: 20071011, end: 20071017
  32. DIOVAN HCT [Concomitant]
     Route: 065
  33. CARDURA [Concomitant]
     Route: 065
  34. CHLORHEXIDINE ACETATE [Concomitant]
     Route: 065
  35. ACETYLCYSTEINE [Concomitant]
     Route: 065
  36. CIPROFLOXACIN [Concomitant]
     Route: 065
  37. RED BLOOD CELLS [Concomitant]
     Route: 065
  38. GLYCERYL TRINITRATE [Concomitant]
     Route: 065
  39. JEVITY [Concomitant]
     Route: 065
  40. AZACTAM [Concomitant]
     Route: 065
  41. CETIRIZINE HCL [Concomitant]
     Route: 065
  42. FRESUBIN [Concomitant]
     Route: 065
  43. PARAFFIN [Concomitant]
     Route: 065
  44. SENOKOT [Concomitant]
     Route: 065
  45. ONDANSETRON [Concomitant]
     Route: 065

REACTIONS (2)
  - RASH [None]
  - TOXIC EPIDERMAL NECROLYSIS [None]
